FAERS Safety Report 23682607 (Version 1)
Quarter: 2024Q1

REPORT INFORMATION
  Report Type: Spontaneous
  Country: US (occurrence: None)
  Receive Date: 20240327
  Receipt Date: 20240327
  Transmission Date: 20240410
  Serious: Yes (Death)
  Sender: FDA-Public Use
  Company Number: None

PATIENT
  Age: 17 Year
  Sex: Male

DRUGS (12)
  1. OFEV [Suspect]
     Active Substance: NINTEDANIB
     Indication: Interstitial lung disease
     Dosage: FREQUENCY : DAILY;?
     Route: 048
     Dates: start: 20191218, end: 20230820
  2. OFEV [Suspect]
     Active Substance: NINTEDANIB
  3. PREDNISONE [Concomitant]
     Active Substance: PREDNISONE
  4. OMEPRAZOLE [Concomitant]
     Active Substance: OMEPRAZOLE
  5. SEPTRA DS [Concomitant]
     Active Substance: SULFAMETHOXAZOLE\TRIMETHOPRIM
  6. MIRTAZAPINE [Concomitant]
  7. CLONIDINE [Concomitant]
     Active Substance: CLONIDINE
  8. ALBUTEROL [Concomitant]
     Active Substance: ALBUTEROL
  9. CLINDAMYCIN [Concomitant]
  10. ALBUTEROL SULFATE [Concomitant]
     Active Substance: ALBUTEROL SULFATE
  11. symbicort HFA [Concomitant]
  12. SILDENAFIL [Concomitant]
     Active Substance: SILDENAFIL

REACTIONS (5)
  - Cardiac arrest [None]
  - Refusal of treatment by relative [None]
  - Interstitial lung disease [None]
  - Pulmonary hypertension [None]
  - Pulse absent [None]

NARRATIVE: CASE EVENT DATE: 20230820
